FAERS Safety Report 11237581 (Version 1)
Quarter: 2015Q3

REPORT INFORMATION
  Report Type: Spontaneous
  Country: IL (occurrence: IL)
  Receive Date: 20150703
  Receipt Date: 20150703
  Transmission Date: 20151125
  Serious: Yes (Hospitalization)
  Sender: FDA-Public Use
  Company Number: IL-CIPLA LTD.-2015IL05479

PATIENT

DRUGS (13)
  1. BEVACIZUMAB [Suspect]
     Active Substance: BEVACIZUMAB
     Indication: COLORECTAL CANCER METASTATIC
     Dosage: 7.5 MG/KG, DAY 1
     Route: 042
     Dates: start: 201201
  2. IRINOTECAN [Suspect]
     Active Substance: IRINOTECAN
     Indication: COLORECTAL CANCER METASTATIC
     Dosage: 200 MG/M2, DAY 1 REPEATED EVERY 3 WEEKS
     Dates: start: 201201
  3. LEUCOVORIN. [Suspect]
     Active Substance: LEUCOVORIN
     Indication: COLORECTAL CANCER METASTATIC
     Dosage: 400 MG/M2 DAYS 1 AND 15
     Route: 042
  4. FEXOFENADINE [Concomitant]
     Active Substance: FEXOFENADINE\FEXOFENADINE HYDROCHLORIDE
     Indication: PREMEDICATION
     Dosage: 180 MG
     Route: 048
  5. DEXACORT [Concomitant]
     Active Substance: DEXAMETHASONE SODIUM PHOSPHATE
     Indication: PREMEDICATION
     Dosage: 20 MG, UNK
     Route: 042
  6. RANITIDINE [Concomitant]
     Active Substance: RANITIDINE\RANITIDINE HYDROCHLORIDE
     Indication: PREMEDICATION
     Dosage: 50 MG, UNK
     Route: 042
  7. FLUOROURACIL. [Suspect]
     Active Substance: FLUOROURACIL
     Dosage: 2400 MG/M2 FOR 46 HOURS DAYS 1 AND 15
     Route: 042
  8. IRINOTECAN [Suspect]
     Active Substance: IRINOTECAN
     Dosage: 500 MG/M2, DAYS 1 AND 15
     Route: 042
  9. FLUOROURACIL. [Suspect]
     Active Substance: FLUOROURACIL
     Indication: COLORECTAL CANCER METASTATIC
     Dosage: 400 MG/M2 FOR 2 HOURS, DAYS 1 AND 15,
     Route: 042
  10. CETUXIMAB [Suspect]
     Active Substance: CETUXIMAB
     Indication: COLORECTAL CANCER METASTATIC
     Route: 065
  11. OXALIPLATIN. [Suspect]
     Active Substance: OXALIPLATIN
     Indication: COLORECTAL CANCER METASTATIC
     Dosage: UNK
     Route: 065
     Dates: start: 201006, end: 201012
  12. PROMETHAZINE [Concomitant]
     Active Substance: PROMETHAZINE\PROMETHAZINE HYDROCHLORIDE
     Indication: PREMEDICATION
     Dosage: 50 MG 2 HOURS BEFORE THE TREATMENT
     Route: 048
  13. CAPEGARD [Suspect]
     Active Substance: CAPECITABINE
     Indication: COLORECTAL CANCER METASTATIC
     Dosage: 2000 MG/M2/D, ON DAYS 1-14
     Route: 048
     Dates: start: 201201

REACTIONS (16)
  - Pruritus [Unknown]
  - Chest discomfort [Unknown]
  - Tachycardia [Unknown]
  - Nausea [Unknown]
  - Diarrhoea [Unknown]
  - Anaphylactic reaction [Unknown]
  - Flushing [Unknown]
  - Cough [Unknown]
  - Dyspnoea [Unknown]
  - Oxygen saturation decreased [Unknown]
  - Hypotension [Unknown]
  - Wheezing [Unknown]
  - Urticaria [Unknown]
  - Vomiting [Unknown]
  - Metastases to liver [Unknown]
  - Neuropathy peripheral [Unknown]

NARRATIVE: CASE EVENT DATE: 201404
